FAERS Safety Report 23255535 (Version 1)
Quarter: 2023Q4

REPORT INFORMATION
  Report Type: Spontaneous
  Country: CA (occurrence: CA)
  Receive Date: 20231203
  Receipt Date: 20231203
  Transmission Date: 20240110
  Serious: Yes (Other)
  Sender: FDA-Public Use
  Company Number: CA-PFIZER INC-202300292475

PATIENT
  Age: 31 Year
  Sex: Male

DRUGS (1)
  1. RUXIENCE [Suspect]
     Active Substance: RITUXIMAB-PVVR
     Dosage: 500 MG, SINGLE (1 DOSE MAINTENANCE)
     Route: 042
     Dates: start: 20231010

REACTIONS (3)
  - Stent removal [Unknown]
  - Soft tissue disorder [Unknown]
  - Off label use [Unknown]

NARRATIVE: CASE EVENT DATE: 20231010
